FAERS Safety Report 5141379-5 (Version None)
Quarter: 2006Q4

REPORT INFORMATION
  Report Type: 
  Country: None (occurrence: None)
  Receive Date: 20061101
  Receipt Date: 20061016
  Transmission Date: 20070319
  Serious: Yes (Other)
  Sender: FDA-Public Use
  Company Number: US-GLAXOSMITHKLINE-A0623729A

PATIENT
  Age: 70 Year
  Sex: Female
  Weight: 67.3 kg

DRUGS (6)
  1. AVANDIA [Suspect]
     Dosage: 8MG PER DAY
     Route: 048
     Dates: start: 20060601
  2. ZIAC [Concomitant]
  3. LIPITOR [Concomitant]
     Dosage: 20MG PER DAY
     Dates: start: 20030901
  4. ASPIRIN [Concomitant]
     Dosage: 81MG PER DAY
  5. MULTI-VITAMIN [Concomitant]
  6. ESTROVEN [Concomitant]

REACTIONS (4)
  - ADVERSE DRUG REACTION [None]
  - ALOPECIA [None]
  - ANAEMIA [None]
  - HYPOTRICHOSIS [None]
